FAERS Safety Report 5280365-1 (Version None)
Quarter: 2007Q1

REPORT INFORMATION
  Report Type: 
  Country: None (occurrence: None)
  Receive Date: 20070326
  Receipt Date: 20070326
  Transmission Date: 20070707
  Serious: Yes (Hospitalization)
  Sender: FDA-Public Use
  Company Number: None

PATIENT
  Sex: Female

DRUGS (7)
  1. REVLIMID [Suspect]
     Indication: MULTIPLE MYELOMA
     Dosage: 15MG QD X 21 DAYS PO
     Route: 048
     Dates: start: 20070124, end: 20070223
  2. NOVOLIN R [Concomitant]
  3. NOVOLIN N [Concomitant]
  4. METOPROLOL SUCCINATE [Concomitant]
  5. DEXAMETHASONE [Concomitant]
  6. HYDROMET [Concomitant]
  7. PROCRIT [Concomitant]

REACTIONS (3)
  - ANAEMIA [None]
  - NEUTROPENIA [None]
  - PNEUMONIA [None]
